FAERS Safety Report 6795141-8 (Version None)
Quarter: 2010Q2

REPORT INFORMATION
  Report Type: 
  Country: None (occurrence: None)
  Receive Date: 20100625
  Receipt Date: 20100625
  Transmission Date: 20101027
  Serious: Yes (Hospitalization, Disabling)
  Sender: FDA-Public Use
  Company Number: PHHO2009US05883

PATIENT
  Sex: Female
  Weight: 79.3 kg

DRUGS (2)
  1. AFINITOR [Suspect]
     Indication: PANCREATIC NEUROENDOCRINE TUMOUR
     Dosage: 10 MG DAILY
     Dates: start: 20090102, end: 20090508
  2. AFINITOR [Suspect]
     Dosage: 10 MG DAILY
     Dates: end: 20090714

REACTIONS (6)
  - ABDOMINAL PAIN [None]
  - COUGH [None]
  - GASTRITIS EROSIVE [None]
  - HAEMATEMESIS [None]
  - NAUSEA [None]
  - VOMITING [None]
